FAERS Safety Report 7153688-9 (Version None)
Quarter: 2010Q4

REPORT INFORMATION
  Report Type: 
  Country: None (occurrence: None)
  Receive Date: 20101213
  Receipt Date: 20101208
  Transmission Date: 20110411
  Serious: Yes (Hospitalization)
  Sender: FDA-Public Use
  Company Number: US-PFIZER INC-2010167921

PATIENT
  Sex: Female
  Weight: 68 kg

DRUGS (1)
  1. NITROGLYCERIN [Suspect]
     Indication: CHEST PAIN
     Dosage: 0.4 MG, AS NEEDED
     Route: 060

REACTIONS (2)
  - HEADACHE [None]
  - MYOCARDIAL INFARCTION [None]
